FAERS Safety Report 19249419 (Version 1)
Quarter: 2021Q2

REPORT INFORMATION
  Report Type: Spontaneous
  Country: US (occurrence: US)
  Receive Date: 20210512
  Receipt Date: 20210512
  Transmission Date: 20210717
  Serious: No
  Sender: FDA-Public Use
  Company Number: US-MORPHOSYS US-2021-MOR001003-US

PATIENT
  Age: 76 Year
  Sex: Male

DRUGS (2)
  1. REVLIMID [Concomitant]
     Active Substance: LENALIDOMIDE
     Indication: PRODUCT USED FOR UNKNOWN INDICATION
     Dosage: UNK
  2. MONJUVI [Suspect]
     Active Substance: TAFASITAMAB-CXIX
     Indication: LYMPHOMA
     Dosage: UNK
     Route: 042
     Dates: start: 20201228

REACTIONS (1)
  - Product dose omission issue [Unknown]
